FAERS Safety Report 21260379 (Version 3)
Quarter: 2022Q4

REPORT INFORMATION
  Report Type: Spontaneous
  Country: JP (occurrence: JP)
  Receive Date: 20220826
  Receipt Date: 20221210
  Transmission Date: 20230112
  Serious: Yes (Hospitalization, Other)
  Sender: FDA-Public Use
  Company Number: JP-ONO-2022JP023288

PATIENT
  Age: 61 Year
  Sex: Male

DRUGS (2)
  1. OPDIVO [Suspect]
     Active Substance: NIVOLUMAB
     Indication: Gastric cancer
     Dosage: UNK?240MG, Q 2WK
     Route: 041
     Dates: start: 20220612
  2. FLUOROURACIL\LEUCOVORIN CALCIUM\OXALIPLATIN [Concomitant]
     Active Substance: FLUOROURACIL\LEUCOVORIN CALCIUM\OXALIPLATIN
     Indication: Gastric cancer
     Route: 065
     Dates: start: 20220612

REACTIONS (3)
  - Dehydration [Unknown]
  - Diarrhoea [Unknown]
  - Pneumatosis intestinalis [Recovered/Resolved]

NARRATIVE: CASE EVENT DATE: 20220713
